FAERS Safety Report 7288167-1 (Version None)
Quarter: 2011Q1

REPORT INFORMATION
  Report Type: 
  Country: None (occurrence: None)
  Receive Date: 20110208
  Receipt Date: 20110208
  Transmission Date: 20110831
  Serious: No
  Sender: FDA-Public Use
  Company Number: None

PATIENT
  Sex: Male
  Weight: 73.6 kg

DRUGS (3)
  1. ZOMETA [Suspect]
     Dosage: 30 MG
  2. QUADRAMET [Suspect]
     Dosage: 82.8 MCI
  3. VITAMIN D [Suspect]
     Dosage: 2000 IU

REACTIONS (1)
  - PLATELET COUNT DECREASED [None]
